FAERS Safety Report 6715784-7 (Version None)
Quarter: 2010Q2

REPORT INFORMATION
  Report Type: 
  Country: None (occurrence: None)
  Receive Date: 20100507
  Receipt Date: 20100430
  Transmission Date: 20101027
  Serious: Yes (Hospitalization, Other)
  Sender: FDA-Public Use
  Company Number: US-ELI_LILLY_AND_COMPANY-US201005000150

PATIENT
  Sex: Female
  Weight: 113.38 kg

DRUGS (12)
  1. BYETTA [Suspect]
     Indication: TYPE 2 DIABETES MELLITUS
     Dosage: 5 UG, 2/D
     Dates: start: 20050101
  2. BYETTA [Suspect]
     Dosage: 10 UG, 2/D
  3. AMITRIPTLINE HYDROCHLORIDE TAB [Concomitant]
  4. CEPHALEXIN [Concomitant]
  5. CYMBALTA [Concomitant]
  6. DETROL LA [Concomitant]
  7. OXYCODONE HCL AND ACETAMINOPHEN [Concomitant]
  8. LASIX [Concomitant]
  9. METFORMIN [Concomitant]
  10. LISINOPRIL [Concomitant]
  11. MELOXICAM [Concomitant]
  12. FENOFIBRATE [Concomitant]

REACTIONS (12)
  - ARTHRALGIA [None]
  - ARTHRITIS [None]
  - BLADDER OPERATION [None]
  - BLOOD GLUCOSE INCREASED [None]
  - CHILLS [None]
  - FALL [None]
  - INJECTION SITE HAEMORRHAGE [None]
  - INSOMNIA [None]
  - RENAL FAILURE [None]
  - SENSORY LOSS [None]
  - SOMNOLENCE [None]
  - TREMOR [None]
